FAERS Safety Report 6774135-2 (Version None)
Quarter: 2010Q2

REPORT INFORMATION
  Report Type: 
  Country: None (occurrence: None)
  Receive Date: 20100617
  Receipt Date: 20100609
  Transmission Date: 20101027
  Serious: Yes (Hospitalization)
  Sender: FDA-Public Use
  Company Number: US-JNJFOC-20100603768

PATIENT
  Sex: Female
  Weight: 56.7 kg

DRUGS (2)
  1. DURAGESIC-100 [Suspect]
     Indication: BACK PAIN
     Route: 062
  2. DURAGESIC-100 [Suspect]
     Route: 062

REACTIONS (5)
  - ASTHENOPIA [None]
  - HYPERHIDROSIS [None]
  - HYPOAESTHESIA [None]
  - MYOCARDIAL INFARCTION [None]
  - THYROID DISORDER [None]
